FAERS Safety Report 5293700-5 (Version None)
Quarter: 2007Q2

REPORT INFORMATION
  Report Type: 
  Country: None (occurrence: None)
  Receive Date: 20070411
  Receipt Date: 20070403
  Transmission Date: 20071010
  Serious: Yes (Hospitalization)
  Sender: FDA-Public Use
  Company Number: US-SHR-US-2007-012052

PATIENT
  Age: 63 Year
  Sex: Male

DRUGS (4)
  1. LEUKINE [Suspect]
     Dosage: 250 MCG/D TO D28 (35 DOSES)
     Route: 058
     Dates: start: 20070214, end: 20070320
  2. PROLEUKIN [Suspect]
     Dosage: 600,000 U/KGQ8H=14 DOSES
     Route: 042
     Dates: start: 20070221, end: 20070314
  3. ALLOPURINOL [Concomitant]
  4. ASPIRIN [Concomitant]

REACTIONS (3)
  - BLOOD GLUCOSE INCREASED [None]
  - DYSPNOEA [None]
  - PULMONARY EMBOLISM [None]
